FAERS Safety Report 4562958-X (Version None)
Quarter: 2005Q1

REPORT INFORMATION
  Report Type: 
  Country: None (occurrence: None)
  Receive Date: 20050121
  Receipt Date: 20050111
  Transmission Date: 20050727
  Serious: Yes (Other)
  Sender: FDA-Public Use
  Company Number: 2005009946

PATIENT
  Age: 89 Year
  Sex: Female

DRUGS (1)
  1. NEURONTIN [Suspect]
     Indication: PAIN
     Dates: start: 20030101, end: 20040601

REACTIONS (1)
  - MACULAR DEGENERATION [None]
